FAERS Safety Report 9813637 (Version 1)
Quarter: 2014Q1

REPORT INFORMATION
  Report Type: Spontaneous
  Country: US (occurrence: None)
  Receive Date: 20140109
  Receipt Date: 20140109
  Transmission Date: 20141002
  Serious: Yes (Hospitalization)
  Sender: FDA-Public Use
  Company Number: None

PATIENT
  Age: 57 Year
  Sex: Female
  Weight: 59 kg

DRUGS (1)
  1. ERIBULIN [Suspect]
     Indication: COLON CANCER
     Route: 042
     Dates: start: 20131129, end: 20131206

REACTIONS (3)
  - Mental status changes [None]
  - Constipation [None]
  - Inappropriate antidiuretic hormone secretion [None]
